FAERS Safety Report 7926794-6 (Version None)
Quarter: 2011Q4

REPORT INFORMATION
  Report Type: 
  Country: None (occurrence: None)
  Receive Date: 20111118
  Receipt Date: 20111110
  Transmission Date: 20120403
  Serious: Yes (Other)
  Sender: FDA-Public Use
  Company Number: US-JNJFOC-20111104804

PATIENT
  Sex: Female

DRUGS (4)
  1. NSAIDS [Concomitant]
  2. PREDNISONE TAB [Concomitant]
     Route: 048
  3. METHOTREXATE [Concomitant]
  4. REMICADE [Suspect]
     Indication: RHEUMATOID ARTHRITIS
     Route: 042

REACTIONS (1)
  - LOSS OF CONSCIOUSNESS [None]
